FAERS Safety Report 6530428-5 (Version None)
Quarter: 2010Q1

REPORT INFORMATION
  Report Type: 
  Country: None (occurrence: None)
  Receive Date: 20100107
  Receipt Date: 20100105
  Transmission Date: 20100710
  Serious: Yes (Hospitalization)
  Sender: FDA-Public Use
  Company Number: GB-MERCK-0911GBR00088

PATIENT
  Age: 92 Year
  Sex: Male

DRUGS (5)
  1. PRINIVIL [Suspect]
     Indication: CARDIAC DISORDER
     Route: 048
     Dates: end: 20091103
  2. NICORANDIL [Suspect]
     Indication: CARDIAC DISORDER
     Route: 048
     Dates: end: 20091103
  3. CALCIUM CARBONATE AND CHOLECALCIFEROL [Concomitant]
     Route: 048
  4. LATANOPROST [Concomitant]
     Route: 047
  5. PRAVASTATIN SODIUM [Concomitant]
     Route: 048

REACTIONS (3)
  - FALL [None]
  - FRACTURE [None]
  - HYPOTENSION [None]
